FAERS Safety Report 6413317-6 (Version None)
Quarter: 2009Q4

REPORT INFORMATION
  Report Type: 
  Country: None (occurrence: None)
  Receive Date: 20091026
  Receipt Date: 20091013
  Transmission Date: 20100525
  Serious: No
  Sender: FDA-Public Use
  Company Number: US-ROCHE-662698

PATIENT
  Age: 18 Month
  Sex: Male

DRUGS (1)
  1. TAMIFLU [Suspect]
     Route: 048
     Dates: start: 20091013

REACTIONS (3)
  - CRYING [None]
  - NO ADVERSE EVENT [None]
  - OVERDOSE [None]
